FAERS Safety Report 13611089 (Version 1)
Quarter: 2017Q2

REPORT INFORMATION
  Report Type: Spontaneous
  Country: US (occurrence: US)
  Receive Date: 20170605
  Receipt Date: 20170605
  Transmission Date: 20170830
  Serious: No
  Sender: FDA-Public Use
  Company Number: None

PATIENT
  Age: 77 Year
  Sex: Female
  Weight: 81.65 kg

DRUGS (8)
  1. CLINDAMYCIN 150MG CAP AURO AUROBINDO [Suspect]
     Active Substance: CLINDAMYCIN
     Indication: INFECTION
     Dosage: QUANITY - 2 THEN ONE?FREQUENCY - 2 CAPSULES IMMEDIATELY, THEN ONE CAPSULE EVERY 6 HOURS UNTIL GONE
     Route: 048
     Dates: start: 20170419, end: 20170420
  2. AMLODIPINE BESYLATE. [Concomitant]
     Active Substance: AMLODIPINE BESYLATE
  3. METFORMIN HCL [Concomitant]
     Active Substance: METFORMIN HYDROCHLORIDE
  4. FUROSEMIDE. [Concomitant]
     Active Substance: FUROSEMIDE
  5. METOPROLOL TARTRATE. [Concomitant]
     Active Substance: METOPROLOL TARTRATE
  6. CLINDAMYCIN 150MG CAP AURO AUROBINDO [Suspect]
     Active Substance: CLINDAMYCIN
     Indication: DENTAL OPERATION
     Dosage: QUANITY - 2 THEN ONE?FREQUENCY - 2 CAPSULES IMMEDIATELY, THEN ONE CAPSULE EVERY 6 HOURS UNTIL GONE
     Route: 048
     Dates: start: 20170419, end: 20170420
  7. BAYER ASPIRIN [Concomitant]
     Active Substance: ASPIRIN
  8. LISINOPRIL. [Concomitant]
     Active Substance: LISINOPRIL

REACTIONS (2)
  - Chest pain [None]
  - Oesophageal pain [None]

NARRATIVE: CASE EVENT DATE: 20170420
